FAERS Safety Report 4544386-6 (Version None)
Quarter: 2005Q1

REPORT INFORMATION
  Report Type: 
  Country: None (occurrence: None)
  Receive Date: 20050104
  Receipt Date: 20041216
  Transmission Date: 20050727
  Serious: Yes (Other)
  Sender: FDA-Public Use
  Company Number: US-MERCK-0412USA02018

PATIENT
  Sex: Male

DRUGS (1)
  1. HEP-B-GAMMAGEE [Suspect]

REACTIONS (2)
  - METAL POISONING [None]
  - NERVOUS SYSTEM DISORDER [None]
